FAERS Safety Report 19163588 (Version 2)
Quarter: 2021Q2

REPORT INFORMATION
  Report Type: Spontaneous
  Country: US (occurrence: US)
  Receive Date: 20210421
  Receipt Date: 20210429
  Transmission Date: 20210717
  Serious: Yes (Death)
  Sender: FDA-Public Use
  Company Number: US-CELGENEUS-USA-20210404505

PATIENT
  Sex: Female

DRUGS (7)
  1. METOPROLOL. [Concomitant]
     Active Substance: METOPROLOL
     Indication: ANTIBIOTIC THERAPY
     Dosage: 50 MILLIGRAM
     Route: 065
     Dates: start: 20200528, end: 20210404
  2. IDHIFA [Suspect]
     Active Substance: ENASIDENIB MESYLATE
     Indication: ACUTE MYELOID LEUKAEMIA
     Dosage: 100 MILLIGRAM
     Route: 048
     Dates: start: 20191025
  3. VALTREX [Concomitant]
     Active Substance: VALACYCLOVIR HYDROCHLORIDE
     Indication: ANTIVIRAL TREATMENT
     Dosage: 1000 MILLIGRAM
     Route: 065
     Dates: start: 20200528, end: 20210404
  4. IDHIFA [Suspect]
     Active Substance: ENASIDENIB MESYLATE
     Indication: DIFFERENTIATION SYNDROME
     Dosage: 100 MILLIGRAM
     Route: 048
     Dates: start: 20210314, end: 20210404
  5. GABAPENTIN. [Concomitant]
     Active Substance: GABAPENTIN
     Indication: NEUROPATHY PERIPHERAL
     Route: 065
     Dates: start: 20200528, end: 20210404
  6. LEVAQUIN [Concomitant]
     Active Substance: LEVOFLOXACIN
     Indication: ANTIBIOTIC THERAPY
     Dosage: 500 MILLIGRAM
     Route: 065
     Dates: start: 20210329, end: 20210404
  7. CRESEMBA [Concomitant]
     Active Substance: ISAVUCONAZONIUM SULFATE
     Indication: ANTIFUNGAL TREATMENT
     Dosage: 372 MILLIGRAM
     Route: 065
     Dates: start: 20200417, end: 20210404

REACTIONS (1)
  - Graft versus host disease in skin [Fatal]
